FAERS Safety Report 16614962 (Version 2)
Quarter: 2019Q3

REPORT INFORMATION
  Report Type: Spontaneous
  Country: US (occurrence: US)
  Receive Date: 20190723
  Receipt Date: 20190729
  Transmission Date: 20191004
  Serious: No
  Sender: FDA-Public Use
  Company Number: US-PFIZER INC-2019314149

PATIENT
  Age: 69 Year
  Sex: Female
  Weight: 62.59 kg

DRUGS (9)
  1. CEFTAZIDIME. [Concomitant]
     Active Substance: CEFTAZIDIME
     Dosage: UNK
     Dates: end: 20190530
  2. VORICONAZOLE. [Suspect]
     Active Substance: VORICONAZOLE
     Indication: PNEUMONIA FUNGAL
     Dosage: 200 MG, 2X/DAY
     Route: 048
     Dates: start: 201904
  3. TOBRAMYCIN. [Concomitant]
     Active Substance: TOBRAMYCIN
     Dosage: UNK
  4. NORVASC [Concomitant]
     Active Substance: AMLODIPINE BESYLATE
     Dosage: UNK
  5. PREDNISONE. [Concomitant]
     Active Substance: PREDNISONE
     Dosage: UNK
  6. BACLOFEN. [Concomitant]
     Active Substance: BACLOFEN
     Dosage: UNK
  7. ALBUTEROL [SALBUTAMOL] [Concomitant]
     Active Substance: ALBUTEROL
     Dosage: UNK
  8. ZOSYN [Concomitant]
     Active Substance: PIPERACILLIN SODIUM\TAZOBACTAM SODIUM
     Dosage: UNK
     Dates: end: 20190530
  9. VORICONAZOLE. [Suspect]
     Active Substance: VORICONAZOLE
     Indication: PNEUMONIA

REACTIONS (14)
  - Hypoaesthesia oral [Not Recovered/Not Resolved]
  - Epistaxis [Not Recovered/Not Resolved]
  - Increased viscosity of upper respiratory secretion [Unknown]
  - Increased appetite [Unknown]
  - Depression [Recovering/Resolving]
  - Condition aggravated [Unknown]
  - Hyperhidrosis [Not Recovered/Not Resolved]
  - Anxiety [Not Recovered/Not Resolved]
  - Gingival pain [Not Recovered/Not Resolved]
  - Nasal inflammation [Not Recovered/Not Resolved]
  - Alopecia [Not Recovered/Not Resolved]
  - Insomnia [Not Recovered/Not Resolved]
  - Polyuria [Not Recovered/Not Resolved]
  - Weight increased [Not Recovered/Not Resolved]

NARRATIVE: CASE EVENT DATE: 201904
